FAERS Safety Report 6761294-0 (Version None)
Quarter: 2010Q2

REPORT INFORMATION
  Report Type: 
  Country: None (occurrence: None)
  Receive Date: 20100608
  Receipt Date: 20100531
  Transmission Date: 20101027
  Serious: Yes (Hospitalization, Other)
  Sender: FDA-Public Use
  Company Number: CA-ABBOTT-10P-028-0648588-00

PATIENT
  Sex: Female
  Weight: 63.56 kg

DRUGS (16)
  1. HUMIRA [Suspect]
     Indication: RHEUMATOID ARTHRITIS
     Dates: start: 20090814, end: 20100507
  2. COZAAR [Concomitant]
     Indication: HYPERTENSION
  3. HYDROXYQUINE [Concomitant]
     Indication: RHEUMATOID ARTHRITIS
  4. LEFLUNOMIDE [Concomitant]
     Indication: RHEUMATOID ARTHRITIS
  5. SIMBICORT [Concomitant]
     Indication: ASTHMA
     Route: 055
  6. PULMICORT [Concomitant]
     Indication: ASTHMA
     Route: 055
  7. SALBUTAMOL [Concomitant]
     Indication: ASTHMA
     Route: 055
  8. LIPITOR [Concomitant]
     Indication: BLOOD CHOLESTEROL
  9. VITAMIN B-12 [Concomitant]
     Indication: DRUG USE FOR UNKNOWN INDICATION
     Dosage: 1200MG DAILY
  10. VITAMIN D [Concomitant]
     Indication: DRUG USE FOR UNKNOWN INDICATION
     Dosage: 400IU DAILY
  11. FOLIC ACID [Concomitant]
     Indication: DRUG USE FOR UNKNOWN INDICATION
  12. AMYTRIPTILINE [Concomitant]
     Indication: DRUG USE FOR UNKNOWN INDICATION
     Dosage: 3 TABS AT BEDTIME
  13. CLONAZEPAM [Concomitant]
     Indication: DRUG USE FOR UNKNOWN INDICATION
     Dosage: AT BEDTIME
  14. CARBAMAZEPINE [Concomitant]
     Indication: DRUG USE FOR UNKNOWN INDICATION
  15. PERCOCET [Concomitant]
     Indication: DRUG USE FOR UNKNOWN INDICATION
  16. SPIRIVA [Concomitant]
     Indication: ASTHMA
     Route: 055

REACTIONS (9)
  - ASTHENIA [None]
  - BACK PAIN [None]
  - CHEST PAIN [None]
  - DIARRHOEA [None]
  - DIZZINESS [None]
  - HYPOTENSION [None]
  - PAIN [None]
  - PANCREATITIS ACUTE [None]
  - VOMITING [None]
